FAERS Safety Report 6268086-X (Version None)
Quarter: 2009Q3

REPORT INFORMATION
  Report Type: 
  Country: None (occurrence: None)
  Receive Date: 20090713
  Receipt Date: 20090702
  Transmission Date: 20100115
  Serious: Yes (Other)
  Sender: FDA-Public Use
  Company Number: 2009AP002664

PATIENT
  Age: 7 Year
  Sex: Male

DRUGS (6)
  1. RISPERIDONE (RISFERIDONE) [Suspect]
     Indication: ABNORMAL BEHAVIOUR
     Dosage: 1 MG;QD
  2. RISPERIDONE (RISFERIDONE) [Suspect]
     Indication: AGGRESSION
     Dosage: 1 MG;QD
  3. RISPERIDONE (RISFERIDONE) [Suspect]
     Indication: ATTENTION DEFICIT/HYPERACTIVITY DISORDER
     Dosage: 1 MG;QD
  4. METHYLPHENIDATE HCL [Suspect]
     Indication: ABNORMAL BEHAVIOUR
     Dosage: 20 MG; QD
  5. METHYLPHENIDATE HCL [Suspect]
     Indication: AGGRESSION
     Dosage: 20 MG; QD
  6. METHYLPHENIDATE HCL [Suspect]
     Indication: ATTENTION DEFICIT/HYPERACTIVITY DISORDER
     Dosage: 20 MG; QD

REACTIONS (3)
  - EXTRAPYRAMIDAL DISORDER [None]
  - JOINT DISLOCATION [None]
  - OROMANDIBULAR DYSTONIA [None]
